FAERS Safety Report 8493324-2 (Version None)
Quarter: 2012Q3

REPORT INFORMATION
  Report Type: 
  Country: None (occurrence: None)
  Receive Date: 20120706
  Receipt Date: 20120629
  Transmission Date: 20120928
  Serious: Yes (Death, Hospitalization)
  Sender: FDA-Public Use
  Company Number: IT-CELGENEUS-083-21880-12062543

PATIENT

DRUGS (2)
  1. DEXAMETHASONE SODIUM PHOSPHATE [Concomitant]
     Indication: LYMPHOMA
     Route: 065
  2. REVLIMID [Suspect]
     Indication: LYMPHOMA
     Dosage: 25 MILLIGRAM
     Route: 048
     Dates: start: 20090930, end: 20091204

REACTIONS (3)
  - PYREXIA [None]
  - THROMBOCYTOPENIA [None]
  - DEATH [None]
